FAERS Safety Report 9341463 (Version 2)
Quarter: 2013Q3

REPORT INFORMATION
  Report Type: Report from Study
  Country: US (occurrence: US)
  Receive Date: 20130611
  Receipt Date: 20130701
  Transmission Date: 20140515
  Serious: Yes (Other)
  Sender: FDA-Public Use
  Company Number: US-ELI_LILLY_AND_COMPANY-US201306001688

PATIENT
  Sex: Female

DRUGS (2)
  1. TERIPARATIDE [Suspect]
     Dosage: UNK, QD
     Dates: start: 2001, end: 2003
  2. TERIPARATIDE [Suspect]
     Dosage: UNK, QD
     Dates: start: 20130201

REACTIONS (13)
  - Osteomyelitis [Unknown]
  - Fibula fracture [Unknown]
  - Hip fracture [Unknown]
  - Tibia fracture [Unknown]
  - Bone density decreased [Unknown]
  - Protein total decreased [Unknown]
  - Body mass index decreased [Unknown]
  - Back pain [Unknown]
  - Renal pain [Unknown]
  - Dyspnoea [Unknown]
  - Proteinuria [Unknown]
  - Incorrect drug administration duration [Unknown]
  - Inappropriate schedule of drug administration [Unknown]
